FAERS Safety Report 7892469-5 (Version None)
Quarter: 2011Q4

REPORT INFORMATION
  Report Type: 
  Country: None (occurrence: None)
  Receive Date: 20111104
  Receipt Date: 20111026
  Transmission Date: 20120403
  Serious: Yes (Life-Threatening, Other)
  Sender: FDA-Public Use
  Company Number: US-JNJFOC-20111000552

PATIENT
  Sex: Female

DRUGS (4)
  1. REMICADE [Suspect]
     Indication: RHEUMATOID ARTHRITIS
     Dosage: 300 MG/250 ML NORMAL SALINE
     Route: 042
     Dates: start: 20110927
  2. ALEVE [Concomitant]
     Indication: ARTHRITIS
     Route: 065
  3. REMICADE [Suspect]
     Route: 042
     Dates: start: 20110901
  4. LEFLUNOMIDE [Concomitant]
     Indication: RHEUMATOID ARTHRITIS
     Route: 065

REACTIONS (8)
  - ANAPHYLACTIC REACTION [None]
  - HYPOKINESIA [None]
  - RASH [None]
  - INFUSION RELATED REACTION [None]
  - MULTI-ORGAN FAILURE [None]
  - DYSPNOEA [None]
  - DRUG EFFECT DECREASED [None]
  - ANTINUCLEAR ANTIBODY POSITIVE [None]
